FAERS Safety Report 11807921 (Version 1)
Quarter: 2015Q4

REPORT INFORMATION
  Report Type: Spontaneous
  Country: CN (occurrence: CN)
  Receive Date: 20151207
  Receipt Date: 20151207
  Transmission Date: 20160305
  Serious: Yes (Other)
  Sender: FDA-Public Use
  Company Number: CN-BAYER-2015-482112

PATIENT
  Sex: Male

DRUGS (2)
  1. BAYASPIRIN [Suspect]
     Active Substance: ASPIRIN
     Dosage: 1 DF, QD
  2. BAYASPIRIN [Suspect]
     Active Substance: ASPIRIN
     Dosage: 2 DF, QD

REACTIONS (2)
  - Gastric haemorrhage [None]
  - Coronary arterial stent insertion [None]
